FAERS Safety Report 8306242-7 (Version None)
Quarter: 2012Q2

REPORT INFORMATION
  Report Type: 
  Country: None (occurrence: None)
  Receive Date: 20120423
  Receipt Date: 20120418
  Transmission Date: 20120825
  Serious: Yes (Other)
  Sender: FDA-Public Use
  Company Number: US-PFIZER INC-2012096607

PATIENT
  Sex: Female
  Weight: 95 kg

DRUGS (2)
  1. NEURONTIN [Suspect]
     Indication: NERVE INJURY
     Dosage: 300 MG, 3X/DAY
     Route: 048
     Dates: start: 20120301, end: 20120101
  2. NEURONTIN [Suspect]
     Dosage: 100 MG, 3X/DAY
     Route: 048
     Dates: start: 20120101, end: 20120417

REACTIONS (7)
  - DIZZINESS [None]
  - GAIT DISTURBANCE [None]
  - INTESTINAL OBSTRUCTION [None]
  - CONSTIPATION [None]
  - SOMNOLENCE [None]
  - VISION BLURRED [None]
  - DIZZINESS POSTURAL [None]
